FAERS Safety Report 11025030 (Version 2)
Quarter: 2015Q2

REPORT INFORMATION
  Report Type: Spontaneous
  Country: FR (occurrence: FR)
  Receive Date: 20150414
  Receipt Date: 20150526
  Transmission Date: 20150821
  Serious: No
  Sender: FDA-Public Use
  Company Number: FR-JNJFOC-20150402442

PATIENT
  Sex: Female
  Weight: 56 kg

DRUGS (1)
  1. DUROGESIC [Suspect]
     Active Substance: FENTANYL
     Indication: PAIN
     Dosage: 12.5UG/HR WITH 0.5UG/HR
     Route: 062
     Dates: start: 20150402, end: 20150408

REACTIONS (2)
  - Inappropriate schedule of drug administration [Unknown]
  - Drug prescribing error [Unknown]
